FAERS Safety Report 4925794-8 (Version None)
Quarter: 2006Q1

REPORT INFORMATION
  Report Type: 
  Country: None (occurrence: None)
  Receive Date: 20060228
  Receipt Date: 20050323
  Transmission Date: 20060701
  Serious: No
  Sender: FDA-Public Use
  Company Number: US-GLAXOSMITHKLINE-A0551016A

PATIENT
  Age: 23 Year
  Sex: Female

DRUGS (2)
  1. LAMICTAL [Suspect]
     Dosage: 50MG UNKNOWN
     Route: 048
     Dates: start: 20050301
  2. BIRTH CONTROL PILLS [Concomitant]

REACTIONS (1)
  - RASH GENERALISED [None]
